FAERS Safety Report 25943504 (Version 1)
Quarter: 2025Q4

REPORT INFORMATION
  Report Type: Spontaneous
  Country: US (occurrence: US)
  Receive Date: 20251021
  Receipt Date: 20251021
  Transmission Date: 20260117
  Serious: No
  Sender: ROCHE
  Company Number: US-ROCHE-10000409548

PATIENT
  Sex: Female

DRUGS (4)
  1. LUNSUMIO [Suspect]
     Active Substance: MOSUNETUZUMAB-AXGB
     Indication: Marginal zone lymphoma
     Route: 065
  2. LUNSUMIO [Suspect]
     Active Substance: MOSUNETUZUMAB-AXGB
     Route: 065
  3. TYLENOL [Concomitant]
     Active Substance: ACETAMINOPHEN
  4. DEXAMETHASONE [Concomitant]
     Active Substance: DEXAMETHASONE

REACTIONS (2)
  - Rash [Unknown]
  - Off label use [Unknown]
